FAERS Safety Report 5208681-X (Version None)
Quarter: 2007Q1

REPORT INFORMATION
  Report Type: 
  Country: None (occurrence: None)
  Receive Date: 20070116
  Receipt Date: 20070110
  Transmission Date: 20070707
  Serious: Yes (Other)
  Sender: FDA-Public Use
  Company Number: US-JNJFOC-20070102413

PATIENT
  Sex: Female
  Weight: 107.96 kg

DRUGS (2)
  1. REMICADE [Suspect]
     Indication: PSORIATIC ARTHROPATHY
     Route: 042
  2. CELEBREX [Concomitant]

REACTIONS (1)
  - HYPERCHOLESTEROLAEMIA [None]
